FAERS Safety Report 12727328 (Version 1)
Quarter: 2016Q3

REPORT INFORMATION
  Report Type: Spontaneous
  Country: BR (occurrence: BR)
  Receive Date: 20160909
  Receipt Date: 20160909
  Transmission Date: 20161109
  Serious: Yes (Other)
  Sender: FDA-Public Use
  Company Number: BR-ASTRAZENECA-2016SE95082

PATIENT
  Age: 20464 Day
  Sex: Female

DRUGS (3)
  1. CRESTOR [Suspect]
     Active Substance: ROSUVASTATIN CALCIUM
     Indication: BLOOD CHOLESTEROL INCREASED
     Route: 048
     Dates: start: 20160817, end: 20160827
  2. GABAPENTIN. [Concomitant]
     Active Substance: GABAPENTIN
     Dosage: 300.0UG UNKNOWN
  3. LEVOID [Concomitant]
     Active Substance: LEVOTHYROXINE
     Indication: HYPOTHYROIDISM

REACTIONS (10)
  - Asthenia [Recovering/Resolving]
  - Gastrointestinal pain [Recovering/Resolving]
  - Hepatic pain [Recovering/Resolving]
  - Dizziness [Recovering/Resolving]
  - Rheumatoid arthritis [Recovering/Resolving]
  - Constipation [Recovering/Resolving]
  - Pyrexia [Recovering/Resolving]
  - Acoustic shock [Recovering/Resolving]
  - Weight decreased [Recovering/Resolving]
  - Myalgia [Recovering/Resolving]

NARRATIVE: CASE EVENT DATE: 20160826
